FAERS Safety Report 15575879 (Version 1)
Quarter: 2018Q4

REPORT INFORMATION
  Report Type: Spontaneous
  Country: IT (occurrence: IT)
  Receive Date: 20181101
  Receipt Date: 20181101
  Transmission Date: 20190205
  Serious: Yes (Other)
  Sender: FDA-Public Use
  Company Number: IT-TEVA-2018-IT-970500

PATIENT
  Age: 87 Year
  Sex: Female

DRUGS (10)
  1. PROCORALAN [Suspect]
     Active Substance: IVABRADINE
     Dosage: 10 MILLIGRAM DAILY;
     Route: 048
     Dates: start: 20180101, end: 20180425
  2. CARDIOASPIRIN [Concomitant]
     Active Substance: ASPIRIN
     Route: 065
  3. METFORMIN [Suspect]
     Active Substance: METFORMIN HYDROCHLORIDE
     Indication: DIABETES MELLITUS
     Dosage: 1500 MILLIGRAM DAILY;
     Route: 048
     Dates: start: 20180101, end: 20180425
  4. TRIATEC  5 MG COMPRESSE [Suspect]
     Active Substance: RAMIPRIL
     Indication: HYPERTENSION
     Dosage: 2.5 MILLIGRAM DAILY;
     Route: 048
     Dates: start: 20180101, end: 20180425
  5. KANRENOL? 25 COMPRESSE [Suspect]
     Active Substance: CANRENOATE POTASSIUM
     Dosage: 1 DOSAGE FORMS DAILY;
     Route: 048
     Dates: start: 20180101, end: 20180425
  6. FUROSEMIDE. [Concomitant]
     Active Substance: FUROSEMIDE
     Route: 048
  7. LANSOX 30 MG CAPSULE RIGIDE [Concomitant]
  8. ARCOXIA [Concomitant]
     Active Substance: ETORICOXIB
     Route: 065
  9. METOPROLOL. [Suspect]
     Active Substance: METOPROLOL
     Indication: HYPERTENSION
     Dosage: 50 MILLIGRAM DAILY;
     Route: 048
     Dates: start: 20180101, end: 20180425
  10. TORVAST 20 MG COMPRESSE RIVESTITE CON FILM [Concomitant]

REACTIONS (4)
  - Lactic acidosis [Recovering/Resolving]
  - Syncope [Recovering/Resolving]
  - Headache [Recovering/Resolving]
  - Confusional state [Recovering/Resolving]

NARRATIVE: CASE EVENT DATE: 20180426
